FAERS Safety Report 17855391 (Version 2)
Quarter: 2020Q2

REPORT INFORMATION
  Report Type: Spontaneous
  Country: US (occurrence: US)
  Receive Date: 20200603
  Receipt Date: 20200605
  Transmission Date: 20200714
  Serious: Yes (Hospitalization)
  Sender: FDA-Public Use
  Company Number: US-PFIZER INC-2020215295

PATIENT
  Age: 52 Year
  Sex: Male
  Weight: 115.67 kg

DRUGS (1)
  1. HYDROXYZINE PAMOATE. [Suspect]
     Active Substance: HYDROXYZINE PAMOATE
     Dosage: UNK

REACTIONS (8)
  - Insomnia [Unknown]
  - Constipation [Unknown]
  - Gastrointestinal disorder [Unknown]
  - Abdominal hernia [Unknown]
  - Dyspnoea [Unknown]
  - Weight increased [Unknown]
  - Feeding disorder [Unknown]
  - Anxiety [Unknown]
